FAERS Safety Report 9901638 (Version 3)
Quarter: 2015Q3

REPORT INFORMATION
  Report Type: Spontaneous
  Country: US (occurrence: US)
  Receive Date: 20140217
  Receipt Date: 20150810
  Transmission Date: 20151125
  Serious: No
  Sender: FDA-Public Use
  Company Number: US-GILEAD-2011-0044353

PATIENT
  Age: 57 Year
  Sex: Female

DRUGS (2)
  1. LETAIRIS [Suspect]
     Active Substance: AMBRISENTAN
     Indication: PRODUCT USED FOR UNKNOWN INDICATION
     Dosage: 10 MG, QD
     Route: 048
     Dates: start: 20110606, end: 20111122
  2. REMODULIN [Concomitant]
     Active Substance: TREPROSTINIL

REACTIONS (3)
  - Dyspnoea [Unknown]
  - Diarrhoea [Unknown]
  - Oedema [Unknown]
